FAERS Safety Report 4430817-9 (Version None)
Quarter: 2004Q3

REPORT INFORMATION
  Report Type: 
  Country: None (occurrence: None)
  Receive Date: 20040823
  Receipt Date: 20040813
  Transmission Date: 20050211
  Serious: Yes (Other)
  Sender: FDA-Public Use
  Company Number: AU-AMGEN-US087139

PATIENT
  Sex: Male

DRUGS (2)
  1. STEMGEN [Suspect]
     Route: 058
     Dates: start: 20040813, end: 20040813
  2. NEUPOGEN [Suspect]

REACTIONS (1)
  - CARDIAC ARREST [None]
